FAERS Safety Report 4414060-5 (Version None)
Quarter: 2004Q3

REPORT INFORMATION
  Report Type: 
  Country: None (occurrence: None)
  Receive Date: 20040728
  Receipt Date: 20040715
  Transmission Date: 20050211
  Serious: Yes (Life-Threatening)
  Sender: FDA-Public Use
  Company Number: 2004IC000393

PATIENT
  Age: 13 Year
  Sex: Male

DRUGS (9)
  1. FLUOROURACIL [Suspect]
     Indication: GASTRIC CANCER
     Dosage: 1000 MG; INTRAVENOUS DRIP
     Route: 041
     Dates: start: 20040617, end: 20040622
  2. CISPLATIN [Suspect]
     Indication: GASTRIC CANCER
     Dosage: 100 MG; INTRAVENOUS
     Route: 042
     Dates: start: 20040617, end: 20040622
  3. KYTRIL [Concomitant]
  4. MEYLON [Concomitant]
  5. BAKTAR [Concomitant]
  6. MINOPHAGEN C [Concomitant]
  7. MORPHINE HYDROCHLORIDE [Concomitant]
  8. ALBUMIN (HUMAN) [Concomitant]
  9. SERENACE [Concomitant]

REACTIONS (8)
  - COGNITIVE DISORDER [None]
  - CRYING [None]
  - DYSARTHRIA [None]
  - DYSPHAGIA [None]
  - ELECTROENCEPHALOGRAM ABNORMAL [None]
  - LEUKOENCEPHALOPATHY [None]
  - SPEECH DISORDER [None]
  - TREMOR [None]
